FAERS Safety Report 6175040-5 (Version None)
Quarter: 2009Q2

REPORT INFORMATION
  Report Type: 
  Country: None (occurrence: None)
  Receive Date: 20090430
  Receipt Date: 20090423
  Transmission Date: 20091009
  Serious: Yes (Life-Threatening, Hospitalization)
  Sender: FDA-Public Use
  Company Number: DE-GENENTECH-281926

PATIENT
  Sex: Male
  Weight: 90 kg

DRUGS (4)
  1. ACTIVASE [Suspect]
     Indication: INFARCTION
     Dosage: 8 ML, UNK
     Route: 040
     Dates: start: 20090115
  2. ACTIVASE [Suspect]
     Dosage: 42 ML, UNK
     Route: 042
  3. METOPROLOL TARTRATE [Concomitant]
     Indication: DRUG USE FOR UNKNOWN INDICATION
     Dosage: 100 MG, UNK
     Route: 048
     Dates: start: 20090115
  4. METOPROLOL TARTRATE [Concomitant]
     Dosage: 47.5 MG, UNK
     Route: 048
     Dates: start: 20090119, end: 20090124

REACTIONS (8)
  - CEREBRAL HAEMATOMA [None]
  - FLUID RETENTION [None]
  - HYPERNATRAEMIA [None]
  - HYPOKALAEMIA [None]
  - HYPONATRAEMIA [None]
  - PNEUMONIA [None]
  - RESPIRATORY FAILURE [None]
  - TACHYARRHYTHMIA [None]
